FAERS Safety Report 6445776-7 (Version None)
Quarter: 2009Q4

REPORT INFORMATION
  Report Type: 
  Country: None (occurrence: None)
  Receive Date: 20091119
  Receipt Date: 20091110
  Transmission Date: 20100525
  Serious: Yes (Other)
  Sender: FDA-Public Use
  Company Number: US-ASTRAZENECA-2006UW11600

PATIENT
  Age: 44 Year
  Sex: Female
  Weight: 80.3 kg

DRUGS (6)
  1. SEROQUEL [Suspect]
     Indication: MENTAL DISORDER
     Dosage: 25-400 MG
     Route: 048
     Dates: start: 20030117
  2. SEROQUEL [Suspect]
     Dosage: 25-400 MG
     Route: 048
     Dates: start: 20030117
  3. SEROQUEL [Suspect]
     Indication: AFFECTIVE DISORDER
     Dosage: 25-400 MG
     Route: 048
     Dates: start: 20030117
  4. ZYPREXA [Concomitant]
     Indication: MENTAL DISORDER
     Dosage: 5-15 MG DAILY
     Route: 048
     Dates: start: 19990101
  5. DESRYL [Concomitant]
     Route: 048
     Dates: start: 20021115
  6. METFORMIN HCL [Concomitant]

REACTIONS (4)
  - DIABETES MELLITUS [None]
  - DIABETES MELLITUS INADEQUATE CONTROL [None]
  - DIABETIC NEUROPATHY [None]
  - PANCREATITIS [None]
